FAERS Safety Report 7684847-4 (Version None)
Quarter: 2011Q3

REPORT INFORMATION
  Report Type: 
  Country: None (occurrence: None)
  Receive Date: 20110810
  Receipt Date: 20110726
  Transmission Date: 20111222
  Serious: Yes (Other)
  Sender: FDA-Public Use
  Company Number: AUR-APL-2011-04417

PATIENT
  Age: 83 Year
  Sex: Female
  Weight: 46.2669 kg

DRUGS (2)
  1. SYNTHROID [Concomitant]
  2. ALENDRONATE SODIUM [Suspect]
     Indication: OSTEOPENIA
     Dosage: 70 MG, 1 IN 1 WK, ORAL
     Route: 048
     Dates: start: 20110716, end: 20110724

REACTIONS (2)
  - ALOPECIA [None]
  - ANXIETY [None]
